FAERS Safety Report 8017358-7 (Version None)
Quarter: 2012Q1

REPORT INFORMATION
  Report Type: 
  Country: None (occurrence: None)
  Receive Date: 20120102
  Receipt Date: 20111228
  Transmission Date: 20120608
  Serious: Yes (Hospitalization)
  Sender: FDA-Public Use
  Company Number: DE-ROCHE-1026424

PATIENT
  Sex: Female
  Weight: 51 kg

DRUGS (6)
  1. NASONEX [Concomitant]
     Indication: UPPER RESPIRATORY TRACT INFECTION
     Dates: start: 20110124
  2. BI 207127 [Suspect]
     Indication: HEPATITIS C
     Route: 048
     Dates: start: 20110117, end: 20110211
  3. BI 201335 (HCV PROTEASE INHIBITOR) [Suspect]
     Indication: HEPATITIS C
     Route: 048
     Dates: start: 20110117, end: 20110211
  4. AMOXICILLIN [Concomitant]
     Indication: UPPER RESPIRATORY TRACT INFECTION
     Route: 048
     Dates: start: 20110124, end: 20110130
  5. BEPANTHEN [Concomitant]
     Indication: MUCOSAL INFLAMMATION
     Route: 048
     Dates: start: 20110126
  6. COPEGUS [Suspect]
     Indication: HEPATITIS C
     Route: 048
     Dates: start: 20110117, end: 20110211

REACTIONS (1)
  - DRUG ERUPTION [None]
